FAERS Safety Report 12936326 (Version 2)
Quarter: 2018Q1

REPORT INFORMATION
  Report Type: Report from Study
  Country: FR (occurrence: FR)
  Receive Date: 20161114
  Receipt Date: 20180104
  Transmission Date: 20180508
  Serious: Yes (Hospitalization)
  Sender: FDA-Public Use
  Company Number: FR-JNJFOC-20161110558

PATIENT
  Age: 34 Year
  Sex: Male
  Weight: 83 kg

DRUGS (2)
  1. SIMPONI [Suspect]
     Active Substance: GOLIMUMAB
     Indication: ANKYLOSING SPONDYLITIS
     Dosage: INJECTION 17
     Route: 058
     Dates: start: 20160905
  2. SIMPONI [Suspect]
     Active Substance: GOLIMUMAB
     Indication: ANKYLOSING SPONDYLITIS
     Route: 058
     Dates: start: 20150515

REACTIONS (3)
  - Bronchitis [Unknown]
  - Skin lesion [Unknown]
  - Lung infection [Unknown]

NARRATIVE: CASE EVENT DATE: 201701
